FAERS Safety Report 16466258 (Version 2)
Quarter: 2019Q4

REPORT INFORMATION
  Report Type: Report from Study
  Country: None (occurrence: NL)
  Receive Date: 20190622
  Receipt Date: 20191218
  Transmission Date: 20200122
  Serious: Yes (Other)
  Sender: FDA-Public Use
  Company Number: NL-ABBVIE-18K-114-2350645-00

PATIENT
  Sex: Female
  Weight: 51.7 kg

DRUGS (5)
  1. MOVICOLON [Concomitant]
     Active Substance: POLYETHYLENE GLYCOL 3350\POTASSIUM CHLORIDE\SODIUM BICARBONATE\SODIUM CHLORIDE
     Indication: ABNORMAL FAECES
  2. DUODOPA [Suspect]
     Active Substance: CARBIDOPA\LEVODOPA
     Dosage: MD: 11, CD: 2.3, ED: 2
     Route: 050
     Dates: start: 20180423
  3. MACROGOL [Concomitant]
     Active Substance: POLYETHYLENE GLYCOLS
     Indication: ABNORMAL FAECES
     Route: 065
  4. DUODOPA [Suspect]
     Active Substance: CARBIDOPA\LEVODOPA
     Indication: PARKINSON^S DISEASE
     Dosage: MD: 12, CD: 2.3, ED: 2
     Route: 050
     Dates: start: 20180423
  5. DUODOPA [Suspect]
     Active Substance: CARBIDOPA\LEVODOPA
     Route: 050

REACTIONS (34)
  - Negative thoughts [Not Recovered/Not Resolved]
  - Abnormal faeces [Not Recovered/Not Resolved]
  - Hallucination [Not Recovered/Not Resolved]
  - Mass [Not Recovered/Not Resolved]
  - Amnesia [Not Recovered/Not Resolved]
  - Stress [Not Recovered/Not Resolved]
  - Emotional disorder [Not Recovered/Not Resolved]
  - Confusional state [Not Recovered/Not Resolved]
  - Stoma site inflammation [Recovered/Resolved]
  - Cognitive disorder [Not Recovered/Not Resolved]
  - Stoma site discharge [Recovered/Resolved]
  - Abnormal faeces [Recovered/Resolved]
  - Somnolence [Not Recovered/Not Resolved]
  - Stoma site extravasation [Not Recovered/Not Resolved]
  - Disturbance in attention [Not Recovered/Not Resolved]
  - Intentional product misuse [Not Recovered/Not Resolved]
  - Abnormal dreams [Recovered/Resolved]
  - Freezing phenomenon [Not Recovered/Not Resolved]
  - Bradyphrenia [Unknown]
  - Dyschezia [Not Recovered/Not Resolved]
  - Unevaluable event [Not Recovered/Not Resolved]
  - Dementia [Not Recovered/Not Resolved]
  - Fatigue [Not Recovered/Not Resolved]
  - Stoma site pain [Recovered/Resolved]
  - Feeling hot [Not Recovered/Not Resolved]
  - Loss of personal independence in daily activities [Not Recovered/Not Resolved]
  - Device issue [Not Recovered/Not Resolved]
  - Motor dysfunction [Recovering/Resolving]
  - Hypophagia [Not Recovered/Not Resolved]
  - On and off phenomenon [Not Recovered/Not Resolved]
  - Dyskinesia [Recovered/Resolved]
  - Muscle rigidity [Not Recovered/Not Resolved]
  - Fibroma [Not Recovered/Not Resolved]
  - Stoma site erythema [Recovered/Resolved]
